FAERS Safety Report 5063787-3 (Version None)
Quarter: 2006Q3

REPORT INFORMATION
  Report Type: 
  Country: None (occurrence: None)
  Receive Date: 20060703
  Receipt Date: 20060418
  Transmission Date: 20061208
  Serious: Yes (Life-Threatening, Hospitalization)
  Sender: FDA-Public Use
  Company Number: 2006S1003737

PATIENT
  Age: 29 Year
  Sex: Male
  Weight: 98.8842 kg

DRUGS (6)
  1. CLOZAPINE [Suspect]
     Indication: FRAGILE X SYNDROME
     Dosage: 200 MG; BID; PO
     Route: 048
     Dates: start: 20060101, end: 20060425
  2. CLOZAPINE [Suspect]
     Indication: PSYCHOTIC DISORDER
     Dosage: 200 MG; BID; PO
     Route: 048
     Dates: start: 20060101, end: 20060425
  3. RISPERIDONE [Concomitant]
  4. VALPROATE SODIUM [Concomitant]
  5. BENZTROPINE MESYLATE [Concomitant]
  6. NADOLOL [Concomitant]

REACTIONS (4)
  - AGRANULOCYTOSIS [None]
  - GRANULOCYTOPENIA [None]
  - LEUKOPENIA [None]
  - PYREXIA [None]
